FAERS Safety Report 20779739 (Version 1)
Quarter: 2022Q2

REPORT INFORMATION
  Report Type: Report from Study
  Country: US (occurrence: US)
  Receive Date: 20220503
  Receipt Date: 20220503
  Transmission Date: 20220721
  Serious: Yes (Hospitalization, Other)
  Sender: FDA-Public Use
  Company Number: US-JCAR017-FOL-001-1051001-20210604-0002SG

PATIENT
  Age: 71 Year
  Sex: Male
  Weight: 77 kg

DRUGS (16)
  1. CYCLOPHOSPHAMIDE [Suspect]
     Active Substance: CYCLOPHOSPHAMIDE
     Indication: Marginal zone lymphoma
     Route: 042
     Dates: start: 20210519, end: 20210521
  2. FLUDARABINE [Suspect]
     Active Substance: FLUDARABINE PHOSPHATE
     Indication: Marginal zone lymphoma
     Route: 042
     Dates: start: 20210519, end: 20210521
  3. VITAMIN C [Concomitant]
     Active Substance: ASCORBIC ACID
     Indication: Routine health maintenance
     Dosage: 1000 MG
     Route: 048
     Dates: start: 2000
  4. CALCIUM [Concomitant]
     Active Substance: CALCIUM
     Indication: Osteoporosis
     Dosage: 600 MG
     Route: 048
     Dates: start: 202101
  5. FAMOTIDINE [Concomitant]
     Active Substance: FAMOTIDINE
     Indication: Gastrooesophageal reflux disease
     Dosage: 20 MG
     Route: 048
     Dates: start: 201701
  6. SENNA LAXATIVE [Concomitant]
     Active Substance: SENNOSIDES
     Indication: Constipation
     Dosage: 1 DF - 1 TABLET?FREQUENCY : PRN
     Route: 048
     Dates: end: 20210525
  7. SENNA LAXATIVE [Concomitant]
     Active Substance: SENNOSIDES
     Dosage: 1 DF = 2 TABLET?FREQUENCY : PRN
     Route: 048
     Dates: start: 20210525
  8. SENNA LAXATIVE [Concomitant]
     Active Substance: SENNOSIDES
     Dosage: FREQUENCY TEXT: PRN?1 TABLET X PRN
  9. VITAMIN D3 [Concomitant]
     Active Substance: CHOLECALCIFEROL
     Indication: Osteoporosis
     Dosage: 400 IU
     Route: 048
     Dates: start: 201901
  10. ACYCLOVIR [Concomitant]
     Active Substance: ACYCLOVIR
     Indication: Antiviral prophylaxis
     Dosage: 400 MG
     Route: 048
     Dates: start: 20210519
  11. ALLOPURINOL [Concomitant]
     Active Substance: ALLOPURINOL
     Indication: Prophylaxis
     Dosage: 300 MG
     Route: 048
     Dates: start: 20210519, end: 20210607
  12. FLUCONAZOLE [Concomitant]
     Active Substance: FLUCONAZOLE
     Indication: Prophylaxis
     Dosage: 400 MG
     Route: 048
     Dates: start: 20210522
  13. MAGNESIUM OXIDE [Concomitant]
     Active Substance: MAGNESIUM OXIDE
     Indication: Hypomagnesaemia
     Dosage: 400 MG
     Route: 048
     Dates: start: 20210401
  14. ONDANSETRON [Concomitant]
     Active Substance: ONDANSETRON
     Indication: Chemotherapy side effect prophylaxis
     Dosage: 16 MG?FREQUENCY : PRN
     Route: 050
     Dates: start: 20210519, end: 20210608
  15. FLOMAX [Concomitant]
     Active Substance: TAMSULOSIN HYDROCHLORIDE
     Indication: Urinary retention
     Dosage: 0.4 MG
     Route: 048
     Dates: start: 20210602
  16. KEPPRA [Concomitant]
     Active Substance: LEVETIRACETAM
     Indication: Prophylaxis
     Dosage: 750 MG X 2 X 1 DAYS
     Dates: start: 20210524, end: 20210616

REACTIONS (1)
  - Neurotoxicity [Recovered/Resolved]

NARRATIVE: CASE EVENT DATE: 20210603
